FAERS Safety Report 10025841 (Version 1)
Quarter: 2014Q1

REPORT INFORMATION
  Report Type: Spontaneous
  Country: DE (occurrence: DE)
  Receive Date: 20140320
  Receipt Date: 20140320
  Transmission Date: 20141002
  Serious: Yes (Other)
  Sender: FDA-Public Use
  Company Number: GXKR2014DE001301

PATIENT
  Age: 74 Year
  Sex: Male

DRUGS (6)
  1. SIMVAHEXAL [Suspect]
     Indication: HYPERLIPIDAEMIA
     Dosage: 30 MG, QHS
     Route: 048
     Dates: start: 2007
  2. ISMN STADA [Concomitant]
     Route: 048
  3. SOTALEX MITE [Concomitant]
     Route: 048
  4. ACE-HEMMER ^RATIOPHARM^ [Concomitant]
     Route: 048
  5. MARCUMAR [Concomitant]
     Route: 048
  6. EUCREAS [Concomitant]
     Route: 048

REACTIONS (1)
  - Lipase increased [Unknown]
